FAERS Safety Report 6474501-9 (Version None)
Quarter: 2009Q4

REPORT INFORMATION
  Report Type: 
  Country: None (occurrence: None)
  Receive Date: 20091204
  Receipt Date: 20091125
  Transmission Date: 20100525
  Serious: Yes (Hospitalization)
  Sender: FDA-Public Use
  Company Number: US-JNJFOC-20091009124

PATIENT
  Sex: Female
  Weight: 61.24 kg

DRUGS (13)
  1. REMICADE [Suspect]
     Route: 042
  2. REMICADE [Suspect]
     Indication: CROHN'S DISEASE
     Dosage: SECOND DOSE
     Route: 042
  3. MERCAPTOPURINE [Concomitant]
     Indication: CROHN'S DISEASE
  4. SEASONALE [Concomitant]
     Indication: CONTRACEPTION
  5. PROVENTIL GENTLEHALER [Concomitant]
     Indication: ASTHMA
  6. TYLENOL (CAPLET) [Concomitant]
     Indication: PREMEDICATION
  7. SOLU-MEDROL [Concomitant]
     Indication: PREMEDICATION
  8. BENADRYL [Concomitant]
     Indication: PREMEDICATION
  9. PREDNISONE [Concomitant]
  10. CLARITIN [Concomitant]
  11. ROWASA [Concomitant]
     Indication: CROHN'S DISEASE
  12. CANASA [Concomitant]
     Indication: CROHN'S DISEASE
  13. PROCTOFOAM [Concomitant]
     Indication: CROHN'S DISEASE

REACTIONS (16)
  - ARTHRALGIA [None]
  - DEHYDRATION [None]
  - DRY MOUTH [None]
  - DYSPNOEA [None]
  - FLUSHING [None]
  - HYPERHIDROSIS [None]
  - HYPOAESTHESIA [None]
  - INAPPROPRIATE SCHEDULE OF DRUG ADMINISTRATION [None]
  - INFUSION RELATED REACTION [None]
  - MUSCLE SPASMS [None]
  - MYALGIA [None]
  - NAUSEA [None]
  - PAIN IN EXTREMITY [None]
  - PALPITATIONS [None]
  - TACHYCARDIA [None]
  - WEIGHT DECREASED [None]
